FAERS Safety Report 8407727 (Version 7)
Quarter: 2012Q4

REPORT INFORMATION
  Report Type: 
  Country: US (occurrence: US)
  Receive Date: 20120215
  Receipt Date: 20120905
  Transmission Date: 20130627
  Serious: Yes (Disabling, Other)
  Sender: FDA-Public Use
  Company Number: US-PFIZER INC-2012037031

PATIENT
  Age: 57 Year
  Sex: Female

DRUGS (9)
  1. LYRICA [Suspect]
     Indication: NEURALGIA
     Dosage: 75 mg, 3x/day
     Dates: end: 20120118
  2. LYRICA [Suspect]
     Dosage: 150 mg, q.a.m.+ 75 mg, at Bedtime
     Dates: start: 20120119
  3. PROTONIX [Suspect]
     Dosage: 40 mg, 1x/day
  4. CARBATROL [Concomitant]
     Indication: NEURALGIA
     Dosage: 400 mg, 2x/day
  5. CARBATROL [Concomitant]
     Dosage: 200 mg, UNK
     Dates: start: 20120516
  6. BACLOFEN [Concomitant]
     Indication: NEURALGIA
     Dosage: 10 mg, UNK
     Dates: start: 20120516
  7. ELAVIL [Concomitant]
     Indication: NEURALGIA
     Dosage: 50 mg, as needed
     Dates: start: 20120516
  8. LEVOTHYROXINE [Concomitant]
     Dosage: 88 ug, UNK
     Dates: start: 20120516
  9. PRAVASTATIN [Concomitant]
     Dosage: 40 mg, UNK
     Dates: start: 20120725

REACTIONS (5)
  - Drug ineffective [Unknown]
  - Impaired work ability [Unknown]
  - Somnolence [Unknown]
  - Dizziness [Unknown]
  - Pain [Unknown]
